FAERS Safety Report 11558295 (Version 2)
Quarter: 2016Q1

REPORT INFORMATION
  Report Type: Report from Study
  Country: GB (occurrence: GB)
  Receive Date: 20150928
  Receipt Date: 20160304
  Transmission Date: 20160525
  Serious: Yes (Hospitalization)
  Sender: FDA-Public Use
  Company Number: GB-BEH-2013036899

PATIENT
  Age: 39 Year
  Sex: Female
  Weight: 77.4 kg

DRUGS (8)
  1. IBUPROFEN. [Concomitant]
     Active Substance: IBUPROFEN
     Indication: MIGRAINE
     Route: 048
     Dates: start: 20110801
  2. CODEINE [Concomitant]
     Active Substance: CODEINE
     Indication: MIGRAINE
     Route: 048
     Dates: start: 20111001
  3. PROPANOLOL [Concomitant]
     Active Substance: PROPRANOLOL HYDROCHLORIDE
     Indication: MIGRAINE
     Route: 048
     Dates: start: 20110515
  4. PARACETAMOL [Concomitant]
     Active Substance: ACETAMINOPHEN
     Indication: MIGRAINE
     Dosage: START DATE: ??-AUG-2011
     Route: 048
  5. ZOLMITRIPTAN. [Concomitant]
     Active Substance: ZOLMITRIPTAN
     Indication: MIGRAINE
     Route: 048
     Dates: start: 20111101
  6. PIRITON [Concomitant]
     Active Substance: CHLORPHENIRAMINE MALEATE
     Indication: MIGRAINE
     Route: 048
     Dates: start: 20080901
  7. PRIVIGEN [Suspect]
     Active Substance: HUMAN IMMUNOGLOBULIN G
     Indication: CHRONIC INFLAMMATORY DEMYELINATING POLYRADICULONEUROPATHY
     Dosage: DOSE: 2G/KG OVER 2 DAYS TOTAL 151 G, MAX. INFUSION RATE 200 ML/H
     Route: 042
     Dates: start: 20130619, end: 20130619
  8. PRIVIGEN [Suspect]
     Active Substance: HUMAN IMMUNOGLOBULIN G
     Dosage: DOSE: 2G/KG OVER 2 DAYS TOTAL 151 G, MAX. INFUSION RATE 200 ML/H
     Route: 042
     Dates: start: 20130620, end: 20130620

REACTIONS (1)
  - Migraine [Recovered/Resolved]

NARRATIVE: CASE EVENT DATE: 20130622
